FAERS Safety Report 9152896 (Version 1)
Quarter: 2013Q1

REPORT INFORMATION
  Report Type: Spontaneous
  Country: US (occurrence: US)
  Receive Date: 20130309
  Receipt Date: 20130309
  Transmission Date: 20140127
  Serious: No
  Sender: FDA-Public Use
  Company Number: US-ASTRAZENECA-2013SE11234

PATIENT
  Age: 65 Year
  Sex: Male
  Weight: 73.9 kg

DRUGS (4)
  1. NEXIUM [Suspect]
     Indication: GASTROOESOPHAGEAL REFLUX DISEASE
     Route: 048
     Dates: start: 2005
  2. LIPITOR [Concomitant]
     Indication: BLOOD CHOLESTEROL INCREASED
  3. PROSTASTRONG [Concomitant]
     Indication: PROSTATIC DISORDER
  4. HYDROCHLOROTHIAZIDE [Concomitant]
     Indication: HYPERNATRAEMIA

REACTIONS (4)
  - Gastrooesophageal reflux disease [Unknown]
  - Blood cholesterol increased [Unknown]
  - Myalgia [Unknown]
  - Drug ineffective [Unknown]
